FAERS Safety Report 5800317-X (Version None)
Quarter: 2008Q3

REPORT INFORMATION
  Report Type: 
  Country: None (occurrence: None)
  Receive Date: 20080702
  Receipt Date: 20080702
  Transmission Date: 20090109
  Serious: Yes (Death, Other)
  Sender: FDA-Public Use
  Company Number: None

PATIENT
  Age: 77 Year
  Sex: Male

DRUGS (1)
  1. DIGITEK  0.25MG [Suspect]
     Indication: CARDIAC FAILURE CONGESTIVE
     Dosage: HALF TABLET DAILY

REACTIONS (1)
  - PHARMACEUTICAL PRODUCT COMPLAINT [None]
